FAERS Safety Report 4367575-2 (Version None)
Quarter: 2004Q2

REPORT INFORMATION
  Report Type: 
  Country: None (occurrence: None)
  Receive Date: 20040601
  Receipt Date: 20020516
  Transmission Date: 20050107
  Serious: Yes (Hospitalization, Disabling, Other)
  Sender: FDA-Public Use
  Company Number: US-MERCK-0205USA02122

PATIENT
  Age: 54 Year
  Sex: Male
  Weight: 66 kg

DRUGS (4)
  1. ACETAMINOPHEN [Concomitant]
     Route: 065
  2. VICODIN [Concomitant]
     Route: 065
  3. VIOXX [Suspect]
     Indication: BACK PAIN
     Route: 048
     Dates: start: 20000801, end: 20010301
  4. VIOXX [Suspect]
     Indication: PAIN IN EXTREMITY
     Route: 048
     Dates: start: 20000801, end: 20010301

REACTIONS (11)
  - CHEST PAIN [None]
  - CHLAMYDIAL INFECTION [None]
  - DEPRESSION [None]
  - DIARRHOEA [None]
  - MUSCULOSKELETAL STIFFNESS [None]
  - PAIN [None]
  - SCROTAL PAIN [None]
  - SLEEP DISORDER [None]
  - SUICIDAL IDEATION [None]
  - SYNCOPE [None]
  - TACHYCARDIA [None]
